FAERS Safety Report 8423801-1 (Version None)
Quarter: 2012Q2

REPORT INFORMATION
  Report Type: 
  Country: None (occurrence: None)
  Receive Date: 20120608
  Receipt Date: 20110816
  Transmission Date: 20120825
  Serious: No
  Sender: FDA-Public Use
  Company Number: US-ASTRAZENECA-2010SE32837

PATIENT
  Age: 64 Year
  Sex: Female

DRUGS (3)
  1. ATACAND [Suspect]
     Route: 048
  2. CRESTOR [Suspect]
     Route: 048
  3. ATACAND HCT [Suspect]
     Route: 048

REACTIONS (4)
  - HEART RATE DECREASED [None]
  - MALAISE [None]
  - DRUG DOSE OMISSION [None]
  - HYPERTENSION [None]
